FAERS Safety Report 15504449 (Version 1)
Quarter: 2018Q4

REPORT INFORMATION
  Report Type: Spontaneous
  Country: GB (occurrence: GB)
  Receive Date: 20181016
  Receipt Date: 20181016
  Transmission Date: 20190205
  Serious: Yes (Other)
  Sender: FDA-Public Use
  Company Number: GB-ACCORD-073142

PATIENT
  Age: 39 Year
  Sex: Male

DRUGS (2)
  1. CAPECITABINE. [Suspect]
     Active Substance: CAPECITABINE
     Indication: COLON CANCER
     Dates: end: 201801
  2. ZAPONEX [Suspect]
     Active Substance: CLOZAPINE
     Indication: PRODUCT USED FOR UNKNOWN INDICATION
     Dosage: ALSO RECEIVED 150 MG/DAY FORM 20-JUN-2017
     Route: 048
     Dates: start: 20090203, end: 201706

REACTIONS (5)
  - Platelet count decreased [Not Recovered/Not Resolved]
  - Colon cancer [Not Recovered/Not Resolved]
  - Neutropenia [Recovered/Resolved]
  - Contraindicated product administered [Unknown]
  - Leukopenia [Recovered/Resolved]

NARRATIVE: CASE EVENT DATE: 20171003
